FAERS Safety Report 5156279-4 (Version None)
Quarter: 2006Q4

REPORT INFORMATION
  Report Type: 
  Country: None (occurrence: None)
  Receive Date: 20061122
  Receipt Date: 20061115
  Transmission Date: 20070319
  Serious: Yes (Hospitalization)
  Sender: FDA-Public Use
  Company Number: US-MERCK-0611USA05166

PATIENT
  Age: 82 Year
  Sex: Female
  Weight: 77 kg

DRUGS (7)
  1. ZETIA [Suspect]
     Route: 048
     Dates: start: 20020101, end: 20060929
  2. PLAVIX [Suspect]
     Indication: ARTERIAL REPAIR
     Route: 048
     Dates: start: 20030101, end: 20060816
  3. LANSOPRAZOLE [Concomitant]
     Indication: GASTROOESOPHAGEAL REFLUX DISEASE
     Route: 048
     Dates: end: 20060801
  4. METOPROLOL SUCCINATE [Concomitant]
     Route: 048
     Dates: start: 20030101
  5. ALPRAZOLAM [Concomitant]
     Route: 048
  6. AMLODIPINE BESYLATE [Concomitant]
     Route: 048
     Dates: start: 20020101
  7. CLOPIDOGREL BISULFATE [Suspect]
     Indication: ARTERIAL REPAIR
     Route: 048
     Dates: start: 20060817, end: 20060929

REACTIONS (6)
  - CHEST PAIN [None]
  - DYSPEPSIA [None]
  - FALL [None]
  - HEAD INJURY [None]
  - JOINT SWELLING [None]
  - OESOPHAGEAL ULCER [None]
